FAERS Safety Report 6571540-4 (Version None)
Quarter: 2010Q1

REPORT INFORMATION
  Report Type: 
  Country: None (occurrence: None)
  Receive Date: 20100205
  Receipt Date: 20100126
  Transmission Date: 20100710
  Serious: Yes (Death, Hospitalization)
  Sender: FDA-Public Use
  Company Number: PT-JNJFOC-20090806492

PATIENT
  Sex: Female

DRUGS (2)
  1. REMICADE [Suspect]
     Indication: COLITIS ULCERATIVE
     Dosage: 2ND INFUSION GIVEN ON AN UNSPECIFIED DATE
     Route: 042
  2. REMICADE [Suspect]
     Route: 042

REACTIONS (2)
  - DEATH [None]
  - MENINGITIS [None]
